FAERS Safety Report 4356400-1 (Version None)
Quarter: 2004Q2

REPORT INFORMATION
  Report Type: 
  Country: None (occurrence: None)
  Receive Date: 20040506
  Receipt Date: 20040428
  Transmission Date: 20050107
  Serious: Yes (Hospitalization)
  Sender: FDA-Public Use
  Company Number: US-JNJFOC-20040304716

PATIENT
  Sex: Male
  Weight: 108.8633 kg

DRUGS (1)
  1. DURAGESIC [Suspect]
     Dosage: 75 UG/HR, 1IN 72 HOUR, TRANSDERMAL
     Route: 062
     Dates: start: 20040310

REACTIONS (9)
  - ABASIA [None]
  - ARTHRITIS INFECTIVE [None]
  - DRUG INEFFECTIVE [None]
  - DRUG WITHDRAWAL SYNDROME [None]
  - HYPERHIDROSIS [None]
  - HYPERTENSION [None]
  - INSOMNIA [None]
  - MOVEMENT DISORDER [None]
  - RESTLESSNESS [None]
